FAERS Safety Report 21116878 (Version 2)
Quarter: 2022Q3

REPORT INFORMATION
  Report Type: Spontaneous
  Country: ES (occurrence: ES)
  Receive Date: 20220722
  Receipt Date: 20220804
  Transmission Date: 20221027
  Serious: Yes (Other)
  Sender: FDA-Public Use
  Company Number: ES-TEVA-2022-ES-2055622

PATIENT
  Age: 47 Year
  Sex: Female

DRUGS (8)
  1. IBUPROFEN [Suspect]
     Active Substance: IBUPROFEN
     Indication: Pyrexia
     Route: 065
  2. IBUPROFEN [Suspect]
     Active Substance: IBUPROFEN
     Indication: Inflammation
  3. COLCHICINE [Suspect]
     Active Substance: COLCHICINE
     Indication: Pyrexia
     Dosage: 1 MILLIGRAM DAILY;
     Route: 065
  4. COLCHICINE [Suspect]
     Active Substance: COLCHICINE
     Indication: Inflammation
  5. ANAKINRA [Suspect]
     Active Substance: ANAKINRA
     Indication: Pyrexia
     Dosage: 100 MILLIGRAM DAILY;
     Route: 058
  6. ANAKINRA [Suspect]
     Active Substance: ANAKINRA
     Indication: Inflammation
     Dosage: 200 MILLIGRAM DAILY;
     Route: 058
  7. PREDNISONE [Concomitant]
     Active Substance: PREDNISONE
     Indication: Pyrexia
     Dosage: 1 MG/KG DAILY;
     Route: 065
  8. PREDNISONE [Concomitant]
     Active Substance: PREDNISONE
     Indication: Inflammation

REACTIONS (3)
  - Drug ineffective [Unknown]
  - Pain [Recovering/Resolving]
  - Skin mass [Recovered/Resolved]
